FAERS Safety Report 15297030 (Version 9)
Quarter: 2019Q1

REPORT INFORMATION
  Report Type: Report from Study
  Country: CA (occurrence: CA)
  Receive Date: 20180820
  Receipt Date: 20190327
  Transmission Date: 20190417
  Serious: Yes (Hospitalization, Other)
  Sender: FDA-Public Use
  Company Number: CA-SA-2018SA140460

PATIENT
  Age: 75 Year
  Sex: Male
  Weight: 86.6 kg

DRUGS (17)
  1. CABAZITAXEL [Suspect]
     Active Substance: CABAZITAXEL
     Indication: PROSTATE CANCER
     Dosage: 42 MG, QCY
     Route: 042
     Dates: start: 20180517, end: 20180517
  2. RYTHMOL [Concomitant]
     Active Substance: PROPAFENONE HYDROCHLORIDE
     Indication: ARRHYTHMIA
     Dosage: 300 MG, TID
     Route: 048
  3. DEXAMETHASONE. [Concomitant]
     Active Substance: DEXAMETHASONE
     Dosage: 10 MG, QD
     Route: 042
  4. BISOPROLOL [Concomitant]
     Active Substance: BISOPROLOL
     Indication: ARRHYTHMIA
     Dosage: 2.5 MG, BID
     Route: 048
  5. DIPHENHYDRAMINE. [Concomitant]
     Active Substance: DIPHENHYDRAMINE
     Dosage: 25 MG, QD
     Route: 042
  6. XGEVA [Concomitant]
     Active Substance: DENOSUMAB
     Indication: METASTASIS
  7. PROCHLORPERAZINE. [Concomitant]
     Active Substance: PROCHLORPERAZINE
     Indication: NAUSEA
     Dosage: 10 MG, PRN (EVERY 4 HOURS)
     Route: 048
  8. RANITIDINE. [Concomitant]
     Active Substance: RANITIDINE
     Dosage: 50 MG, QD
     Route: 042
  9. PREDNISONE. [Concomitant]
     Active Substance: PREDNISONE
     Dosage: 5 MG, BID
     Route: 048
  10. XGEVA [Concomitant]
     Active Substance: DENOSUMAB
     Indication: FRACTURE
     Dosage: 120 MG, Q4W
     Route: 058
  11. OSCAL D [CALCIUM CARBONATE;COLECALCIFEROL] [Concomitant]
     Indication: SUPPLEMENTATION THERAPY
     Dosage: 2 DF (500 MG + 400UI), BID
     Route: 048
  12. LEUPROLIDE [LEUPRORELIN] [Concomitant]
     Indication: HORMONE LEVEL ABNORMAL
     Dosage: 30 MG, Q4M
     Route: 030
  13. SYNTHROID [Concomitant]
     Active Substance: LEVOTHYROXINE SODIUM
     Indication: HYPOTHYROIDISM
     Dosage: 225 UG, BID
     Route: 048
  14. ASA [Concomitant]
     Active Substance: ASPIRIN
     Indication: ANTIPLATELET THERAPY
     Dosage: 80 MG, BID
     Route: 048
  15. LAX-A-DAY [Concomitant]
     Indication: CONSTIPATION
     Dosage: 17 G, BID
     Route: 048
  16. PANTOPRAZOLE [Concomitant]
     Active Substance: PANTOPRAZOLE
     Indication: COLITIS ULCERATIVE
     Dosage: 40 MG, BID
     Route: 048
  17. SALOFALK [MESALAZINE] [Concomitant]
     Active Substance: MESALAMINE
     Indication: COLITIS ULCERATIVE
     Dosage: 500 MG, 2-3 TABS BID
     Route: 048

REACTIONS (17)
  - Cellulitis [Recovering/Resolving]
  - Prostatic specific antigen decreased [Not Recovered/Not Resolved]
  - Fatigue [Recovering/Resolving]
  - Diarrhoea [Recovered/Resolved]
  - Pyrexia [Not Recovered/Not Resolved]
  - Impetigo [Recovered/Resolved]
  - Dysuria [Not Recovered/Not Resolved]
  - Pneumonia [Recovered/Resolved]
  - Bradycardia [Not Recovered/Not Resolved]
  - Urinary tract infection [Recovered/Resolved]
  - Blood pressure increased [Recovered/Resolved]
  - Pulmonary embolism [Recovered/Resolved]
  - Haematuria [Recovering/Resolving]
  - Constipation [Not Recovered/Not Resolved]
  - Urosepsis [Recovered/Resolved]
  - Dysgeusia [Not Recovered/Not Resolved]
  - Diarrhoea [Not Recovered/Not Resolved]

NARRATIVE: CASE EVENT DATE: 20180517
